FAERS Safety Report 5024738-0 (Version None)
Quarter: 2006Q2

REPORT INFORMATION
  Report Type: 
  Country: None (occurrence: None)
  Receive Date: 20060426
  Receipt Date: 20060228
  Transmission Date: 20061013
  Serious: Yes (Other)
  Sender: FDA-Public Use
  Company Number: 2006030540

PATIENT
  Sex: Male
  Weight: 81.6475 kg

DRUGS (7)
  1. LYRICA [Suspect]
     Indication: POST HERPETIC NEURALGIA
     Dosage: 50 MG (50 MG, 1 IN 1 D)
     Dates: start: 20051201
  2. NORVASC [Concomitant]
  3. ISOSORBIDE (ISOSORBIDE) [Concomitant]
  4. TOPROL-XL [Concomitant]
  5. MEVACOR [Concomitant]
  6. MULTIVITAMIN [Concomitant]
  7. ASPIRIN [Concomitant]

REACTIONS (2)
  - PAIN [None]
  - WEIGHT INCREASED [None]
